FAERS Safety Report 4442627-7 (Version None)
Quarter: 2004Q3

REPORT INFORMATION
  Report Type: 
  Country: None (occurrence: None)
  Receive Date: 20040903
  Receipt Date: 20040720
  Transmission Date: 20050211
  Serious: Yes (Other)
  Sender: FDA-Public Use
  Company Number: 2004UW15259

PATIENT
  Age: 89 Year
  Sex: Female
  Weight: 63.5036 kg

DRUGS (5)
  1. CRESTOR [Suspect]
     Indication: BLOOD CHOLESTEROL INCREASED
     Dosage: 10 MG QD PO
     Route: 048
  2. TOPROL-XL [Concomitant]
  3. ASPIRIN [Concomitant]
  4. MIACIN [Concomitant]
  5. THYROID MEDICATION [Concomitant]

REACTIONS (5)
  - ASTHENIA [None]
  - BACK PAIN [None]
  - GASTRIC ULCER [None]
  - PAIN [None]
  - RENAL IMPAIRMENT [None]
